FAERS Safety Report 5739001-X (Version None)
Quarter: 2008Q2

REPORT INFORMATION
  Report Type: 
  Country: None (occurrence: None)
  Receive Date: 20080515
  Receipt Date: 20080512
  Transmission Date: 20081010
  Serious: Yes (Death, Life-Threatening, Hospitalization)
  Sender: FDA-Public Use
  Company Number: RS-ABBOTT-08P-303-0451554-00

PATIENT
  Sex: Female
  Weight: 48 kg

DRUGS (1)
  1. KALETRA [Suspect]
     Indication: HIV INFECTION
     Dosage: 3 CAPSULES TWICE DAILY
     Route: 048
     Dates: start: 20061225, end: 20071015

REACTIONS (4)
  - DEPRESSED LEVEL OF CONSCIOUSNESS [None]
  - DISSEMINATED TUBERCULOSIS [None]
  - PROTEINURIA [None]
  - PYREXIA [None]
